FAERS Safety Report 26134684 (Version 1)
Quarter: 2025Q4

REPORT INFORMATION
  Report Type: Spontaneous
  Country: CN (occurrence: CN)
  Receive Date: 20251209
  Receipt Date: 20251209
  Transmission Date: 20260118
  Serious: Yes (Hospitalization, Other)
  Sender: SOMERSET THERAPEUTICS, LLC
  Company Number: CN-MIT-25-75-CN-2025-SOM-LIT-00471

PATIENT
  Age: 63 Year
  Sex: Male

DRUGS (4)
  1. PEMETREXED DISODIUM [Suspect]
     Active Substance: PEMETREXED DISODIUM
     Indication: Non-small cell lung cancer metastatic
     Route: 065
  2. BEVACIZUMAB [Suspect]
     Active Substance: BEVACIZUMAB
     Indication: Non-small cell lung cancer metastatic
     Route: 065
  3. CARBOPLATIN [Suspect]
     Active Substance: CARBOPLATIN
     Indication: Non-small cell lung cancer metastatic
     Route: 065
  4. CAMRELIZUMAB [Suspect]
     Active Substance: CAMRELIZUMAB
     Indication: Non-small cell lung cancer metastatic
     Route: 065

REACTIONS (1)
  - Drug-induced liver injury [Recovered/Resolved]
